FAERS Safety Report 18516317 (Version 2)
Quarter: 2020Q4

REPORT INFORMATION
  Report Type: Spontaneous
  Country: CA (occurrence: CA)
  Receive Date: 20201118
  Receipt Date: 20201125
  Transmission Date: 20210114
  Serious: Yes (Other)
  Sender: FDA-Public Use
  Company Number: CA-ORION CORPORATION ORION PHARMA-20_00011770

PATIENT
  Age: 53 Year
  Sex: Female

DRUGS (6)
  1. PIROXICAM [PIROXICAM OLAMINE] [Concomitant]
     Dosage: AS NEEDED
     Route: 065
  2. METHOTREXATE (TRADE NAME UNKNOWN) [Suspect]
     Active Substance: METHOTREXATE
     Indication: PRODUCT USED FOR UNKNOWN INDICATION
     Route: 048
     Dates: start: 201910, end: 202005
  3. PANTOPRAZOLE [Concomitant]
     Active Substance: PANTOPRAZOLE
     Route: 065
  4. LEFLUNOMIDE. [Concomitant]
     Active Substance: LEFLUNOMIDE
     Route: 065
  5. CITALOPRAM [Concomitant]
     Active Substance: CITALOPRAM HYDROBROMIDE
     Route: 065
  6. METHOTREXATE (TRADE NAME UNKNOWN) [Suspect]
     Active Substance: METHOTREXATE
     Route: 058
     Dates: start: 201910, end: 202005

REACTIONS (7)
  - Diverticulitis [Unknown]
  - Fatigue [Unknown]
  - Treatment failure [Unknown]
  - Drug intolerance [Unknown]
  - Nausea [Unknown]
  - Bronchitis [Unknown]
  - Back pain [Unknown]

NARRATIVE: CASE EVENT DATE: 2020
